FAERS Safety Report 8841137 (Version 6)
Quarter: 2014Q2

REPORT INFORMATION
  Report Type: Report from Study
  Country: US (occurrence: US)
  Receive Date: 20121015
  Receipt Date: 20140423
  Transmission Date: 20141212
  Serious: Yes (Hospitalization)
  Sender: FDA-Public Use
  Company Number: US-AMGEN-USACT2012064841

PATIENT
  Age: 13 Year
  Sex: Male
  Weight: 44.5 kg

DRUGS (16)
  1. CINACALCET HCL [Suspect]
     Indication: HYPERPARATHYROIDISM SECONDARY
     Dosage: 30 MG, QD
     Route: 048
     Dates: start: 20120626, end: 20121009
  2. EPOGEN [Suspect]
     Indication: PRODUCT USED FOR UNKNOWN INDICATION
     Dosage: 4000 UNIT, 3 TIMES/WK
     Route: 065
  3. ALBUTEROL [Concomitant]
     Dosage: 90 MUG, UNK
     Route: 055
  4. ZYLOPRIM [Concomitant]
     Dosage: 100 MG, UNK
     Route: 048
     Dates: end: 20121009
  5. NORVASC [Concomitant]
     Dosage: 10 MG, BID
     Route: 048
  6. ASPIRIN CHILDREN [Concomitant]
     Dosage: 81 MG, QD
     Route: 048
  7. CHLORHEXIDINE [Concomitant]
     Dosage: UNK UNK, BID
     Route: 061
  8. VASOTEC [Concomitant]
     Dosage: 2.5 MG, Q12H
     Route: 048
  9. VITAMIN D [Concomitant]
     Dosage: UNK UNK, Q4WK
     Route: 048
  10. NEXIUM [Concomitant]
     Dosage: 20 MG, QD
     Route: 048
  11. LABETALOL [Concomitant]
     Dosage: 200 MG, BID
     Route: 048
  12. EMLA [Concomitant]
     Dosage: UNK UNK, 3 TIMES/WK
     Route: 061
  13. COZAAR [Concomitant]
     Dosage: 37.5 MG, BID
     Route: 048
  14. BACTROBAN [Concomitant]
     Route: 061
  15. PROCARDIA [Concomitant]
     Dosage: 10 MG, PRN
     Route: 048
  16. RENVELA [Concomitant]
     Dosage: 800 MG, UNK
     Route: 048

REACTIONS (4)
  - Hypocalcaemia [Recovered/Resolved]
  - Hypertension [Recovered/Resolved]
  - Hypertensive encephalopathy [Recovered/Resolved]
  - Haemoglobin increased [Recovered/Resolved]
